FAERS Safety Report 10308279 (Version 4)
Quarter: 2014Q3

REPORT INFORMATION
  Report Type: Spontaneous
  Country: AL (occurrence: AL)
  Receive Date: 20140716
  Receipt Date: 20140808
  Transmission Date: 20150326
  Serious: Yes (Death, Life-Threatening, Hospitalization)
  Sender: FDA-Public Use
  Company Number: AL-ROCHE-1432033

PATIENT
  Age: 63 Year
  Sex: Female
  Weight: 56 kg

DRUGS (8)
  1. AVASTIN [Suspect]
     Active Substance: BEVACIZUMAB
     Indication: CERVIX CANCER METASTATIC
     Dosage: 800 MG
     Route: 042
     Dates: start: 201401, end: 20140407
  2. PACLITAXEL. [Suspect]
     Active Substance: PACLITAXEL
     Indication: CERVIX CANCER METASTATIC
     Route: 042
     Dates: start: 201401, end: 20140407
  3. CARBOPLATIN. [Suspect]
     Active Substance: CARBOPLATIN
     Indication: CERVIX CANCER METASTATIC
     Route: 042
     Dates: start: 201401, end: 20140407
  4. MANITOL [Concomitant]
     Route: 042
     Dates: start: 201401, end: 20140410
  5. ASPIRIN. [Concomitant]
     Active Substance: ASPIRIN
  6. ZOFRAN [Concomitant]
     Active Substance: ONDANSETRON HYDROCHLORIDE
     Indication: NAUSEA
     Route: 042
     Dates: start: 201401, end: 20140410
  7. PANTOPRAZOLE [Concomitant]
     Active Substance: PANTOPRAZOLE SODIUM
     Route: 042
     Dates: start: 201401, end: 20140410
  8. DEXASONE [Concomitant]
     Route: 042
     Dates: start: 201401, end: 20140410

REACTIONS (2)
  - Multi-organ failure [Fatal]
  - Large intestine perforation [Unknown]

NARRATIVE: CASE EVENT DATE: 201404
